FAERS Safety Report 4430510-2 (Version None)
Quarter: 2004Q3

REPORT INFORMATION
  Report Type: 
  Country: None (occurrence: None)
  Receive Date: 20040721
  Receipt Date: 20030728
  Transmission Date: 20050211
  Serious: Yes (Hospitalization)
  Sender: FDA-Public Use
  Company Number: OMPQ-PR-0307S-0516(0)

PATIENT
  Age: 47 Year
  Sex: Male
  Weight: 85.2762 kg

DRUGS (2)
  1. OMNIPAQUE 140 [Suspect]
     Dosage: SINGE DOSE, I.T.
     Dates: start: 20030726, end: 20030726
  2. OMNIPAQUE 140 [Suspect]

REACTIONS (1)
  - CSF WHITE BLOOD CELL COUNT POSITIVE [None]
